FAERS Safety Report 9867711 (Version 2)
Quarter: 2014Q1

REPORT INFORMATION
  Report Type: Report from Study
  Country: US (occurrence: US)
  Receive Date: 20140204
  Receipt Date: 20140204
  Transmission Date: 20141002
  Serious: Yes (Hospitalization)
  Sender: FDA-Public Use
  Company Number: US-SANOFI-AVENTIS-2012SA054718

PATIENT
  Age: 38 Year
  Sex: Female
  Weight: 66 kg

DRUGS (11)
  1. TERIFLUNOMIDE [Suspect]
     Indication: MULTIPLE SCLEROSIS RELAPSE
     Route: 048
     Dates: start: 20120220
  2. DIAZEPAM [Concomitant]
     Indication: ANXIETY
     Route: 048
     Dates: start: 19970610
  3. MECLOZINE [Concomitant]
     Indication: VERTIGO
     Route: 048
     Dates: start: 20100216
  4. BACLOFEN [Concomitant]
     Indication: MUSCLE SPASTICITY
     Route: 048
     Dates: start: 20100813
  5. VIVELLE-DOT [Concomitant]
     Indication: HORMONE REPLACEMENT THERAPY
     Route: 061
     Dates: start: 20100729
  6. MULTIVITAMINS [Concomitant]
     Indication: VITAMIN SUPPLEMENTATION
     Dosage: DOSE:1 UNIT(S)
     Route: 048
     Dates: start: 20100824
  7. ULTRAM [Concomitant]
     Indication: PAIN IN EXTREMITY
     Route: 048
     Dates: start: 20101020
  8. PRAMIPEXOLE DIHYDROCHLORIDE [Concomitant]
     Indication: RESTLESS LEGS SYNDROME
     Route: 048
     Dates: start: 20100923
  9. ZANAFLEX [Concomitant]
     Indication: MUSCLE SPASMS
     Route: 048
     Dates: start: 20120522
  10. IBUPROFEN [Concomitant]
     Indication: ARTHRALGIA
     Route: 048
     Dates: start: 20120509
  11. COLESTYRAMINE [Concomitant]
     Indication: DRUG DETOXIFICATION
     Route: 048
     Dates: start: 20120723, end: 20120723

REACTIONS (1)
  - Cholecystitis chronic [Recovered/Resolved]
